FAERS Safety Report 7605532-0 (Version None)
Quarter: 2011Q3

REPORT INFORMATION
  Report Type: 
  Country: None (occurrence: None)
  Receive Date: 20110713
  Receipt Date: 20110630
  Transmission Date: 20111222
  Serious: Yes (Hospitalization, Other)
  Sender: FDA-Public Use
  Company Number: US-BAYER-2010-001770

PATIENT
  Sex: Female
  Weight: 70.295 kg

DRUGS (15)
  1. YASMIN [Suspect]
     Indication: PRODUCT USED FOR UNKNOWN INDICATION
     Dosage: UNK
     Dates: start: 20040101, end: 20100301
  2. DICYCLOMINE [Concomitant]
     Dosage: UNK
     Dates: start: 20070926
  3. HYOSCYAMINE [Concomitant]
     Dosage: UNK
     Dates: start: 20071016
  4. NAPROXEN (ALEVE) [Concomitant]
     Indication: HEADACHE
     Dosage: UNK
     Dates: start: 20030101
  5. DOC-Q-LACE [Concomitant]
     Dosage: UNK
     Dates: start: 20070926
  6. TRAMADOL HCL [Concomitant]
     Dosage: UNK
     Dates: start: 20071105
  7. YAZ [Suspect]
     Indication: PRODUCT USED FOR UNKNOWN INDICATION
     Dosage: UNK
     Dates: start: 20040101, end: 20100301
  8. ADDERALL 10 [Concomitant]
     Dosage: UNK
     Dates: start: 20050406, end: 20100614
  9. HYDROCODONE BITARTRATE AND ACETAMINOPHEN [Concomitant]
     Dosage: UNK
     Dates: start: 20070914
  10. OXYCODONE HCL [Concomitant]
     Dosage: UNK
     Dates: start: 20070924
  11. RANITIDINE [Concomitant]
     Dosage: UNK
     Dates: start: 20070924
  12. LEVAQUIN [Concomitant]
     Dosage: UNK
     Dates: start: 20070914
  13. NEXIUM [Concomitant]
     Dosage: UNK
     Dates: start: 20071016
  14. LORAZEPAM [Concomitant]
     Dosage: UNK
     Dates: start: 20071016
  15. ONDANSETRON [Concomitant]
     Dosage: UNK
     Dates: start: 20071017

REACTIONS (10)
  - ANXIETY [None]
  - CHOLECYSTITIS CHRONIC [None]
  - EMOTIONAL DISTRESS [None]
  - DISABILITY [None]
  - PAIN [None]
  - DEFORMITY [None]
  - BILE DUCT STONE [None]
  - PANCREATITIS [None]
  - GALLBLADDER DISORDER [None]
  - PANCREATIC CYST [None]
